FAERS Safety Report 4298497-3 (Version None)
Quarter: 2004Q1

REPORT INFORMATION
  Report Type: 
  Country: None (occurrence: None)
  Receive Date: 20040218
  Receipt Date: 20031121
  Transmission Date: 20041129
  Serious: Yes (Other)
  Sender: FDA-Public Use
  Company Number: US-BRISTOL-MYERS SQUIBB COMPANY-12442257

PATIENT
  Age: 20 Year
  Sex: Female
  Weight: 111 kg

DRUGS (3)
  1. STADOL [Suspect]
     Indication: MIGRAINE
     Route: 045
     Dates: start: 19921203
  2. PHENERGAN [Concomitant]
  3. AMBIEN [Concomitant]

REACTIONS (1)
  - DEPENDENCE [None]
